FAERS Safety Report 4459221-4 (Version None)
Quarter: 2004Q3

REPORT INFORMATION
  Report Type: 
  Country: None (occurrence: None)
  Receive Date: 20040923
  Receipt Date: 20040914
  Transmission Date: 20050211
  Serious: Yes (Hospitalization)
  Sender: FDA-Public Use
  Company Number: 2004UW18571

PATIENT
  Age: 44 Year
  Sex: Female

DRUGS (6)
  1. CRESTOR [Suspect]
     Dosage: 10 MG QD PO
     Route: 048
     Dates: start: 20031205, end: 20040108
  2. PROZAC [Concomitant]
  3. LIBRIUM [Concomitant]
  4. TIMOPTIC [Concomitant]
  5. ALPHAGAN [Concomitant]
  6. TRUSOFF [Concomitant]

REACTIONS (1)
  - RHABDOMYOLYSIS [None]
